FAERS Safety Report 8004446-4 (Version None)
Quarter: 2011Q4

REPORT INFORMATION
  Report Type: 
  Country: None (occurrence: None)
  Receive Date: 20111221
  Receipt Date: 20111221
  Transmission Date: 20120403
  Serious: Yes (Other)
  Sender: FDA-Public Use
  Company Number: None

PATIENT
  Sex: Female
  Weight: 79.3795 kg

DRUGS (3)
  1. ATENOLOL [Concomitant]
  2. LEVAQUIN [Suspect]
     Indication: INFLAMMATION
     Dosage: ONE DAILY
     Dates: start: 20111103, end: 20111106
  3. ASPIRIN [Concomitant]

REACTIONS (7)
  - PALPITATIONS [None]
  - TACHYCARDIA [None]
  - PRURITUS [None]
  - NAUSEA [None]
  - DIZZINESS [None]
  - PAIN [None]
  - SKIN EXFOLIATION [None]
